FAERS Safety Report 5161035-7 (Version None)
Quarter: 2006Q4

REPORT INFORMATION
  Report Type: 
  Country: None (occurrence: None)
  Receive Date: 20061121
  Receipt Date: 20061025
  Transmission Date: 20070319
  Serious: Yes (Hospitalization)
  Sender: FDA-Public Use
  Company Number: 2006140105

PATIENT
  Age: 4 Year
  Sex: Male

DRUGS (2)
  1. CEFPODOXIME PROXETIL [Suspect]
     Indication: TONSILLITIS STREPTOCOCCAL
     Dosage: 1 U SOLUTION NOS, ORAL
     Route: 048
     Dates: start: 20061022, end: 20061022
  2. ASPEGIC 1000 [Concomitant]

REACTIONS (1)
  - ENTEROCOLITIS HAEMORRHAGIC [None]
